FAERS Safety Report 13719009 (Version 7)
Quarter: 2024Q2

REPORT INFORMATION
  Report Type: Other
  Country: US (occurrence: None)
  Receive Date: 20170705
  Receipt Date: 20240606
  Transmission Date: 20240716
  Serious: Yes (Hospitalization, Other)
  Sender: FDA-Public Use
  Company Number: US-ROCHE-1955943

PATIENT
  Age: 58 Year
  Sex: Female
  Weight: 77.634 kg

DRUGS (40)
  1. OCREVUS [Suspect]
     Active Substance: OCRELIZUMAB
     Indication: Relapsing multiple sclerosis
     Route: 042
     Dates: start: 201706
  2. OCREVUS [Suspect]
     Active Substance: OCRELIZUMAB
     Route: 042
     Dates: start: 20170615
  3. LASIX [Suspect]
     Active Substance: FUROSEMIDE
     Indication: Product used for unknown indication
     Route: 065
  4. DOXYCYCLINE [Concomitant]
     Active Substance: DOXYCYCLINE\DOXYCYCLINE HYCLATE
     Dosage: FOR 5 DAYS ;ONGOING: UNKNOWN
  5. BACLOFEN [Concomitant]
     Active Substance: BACLOFEN
  6. DICLOFENAC SODIUM [Concomitant]
     Active Substance: DICLOFENAC\DICLOFENAC SODIUM
  7. LEVOTHYROXINE [Concomitant]
     Active Substance: LEVOTHYROXINE\LEVOTHYROXINE SODIUM
  8. MECLIZINE [Concomitant]
     Active Substance: MECLIZINE HYDROCHLORIDE
  9. ROPINIROLE [Concomitant]
     Active Substance: ROPINIROLE
  10. HYDROXYZINE HYDROCHLORIDE [Concomitant]
     Active Substance: HYDROXYZINE HYDROCHLORIDE
  11. MONTELUKAST [Concomitant]
     Active Substance: MONTELUKAST SODIUM
  12. NEXIUM [Concomitant]
     Active Substance: ESOMEPRAZOLE MAGNESIUM
  13. PREMPRO [Concomitant]
     Active Substance: ESTROGENS, CONJUGATED\MEDROXYPROGESTERONE ACETATE
     Dosage: 0.625 MG-2.5 MG
  14. FLUCONAZOLE [Concomitant]
     Active Substance: FLUCONAZOLE
  15. PROAIR HFA [Concomitant]
     Active Substance: ALBUTEROL SULFATE
  16. METHYLPHENIDATE [Concomitant]
     Active Substance: METHYLPHENIDATE
  17. ZOLPIDEM [Concomitant]
     Active Substance: ZOLPIDEM TARTRATE
  18. DIAZEPAM [Concomitant]
     Active Substance: DIAZEPAM
     Route: 048
  19. POTASSIUM CHLORIDE [Concomitant]
     Active Substance: POTASSIUM CHLORIDE
  20. CICLOPIROX [Concomitant]
     Active Substance: CICLOPIROX\TOCOPHEROL
  21. FERROUS SULFATE [Concomitant]
     Active Substance: FERROUS SULFATE
  22. PRAMIPEXOLE [Concomitant]
     Active Substance: PRAMIPEXOLE\PRAMIPEXOLE DIHYDROCHLORIDE
  23. LIDOCAINE [Concomitant]
     Active Substance: LIDOCAINE
  24. DESVENLAFAXINE SUCCINATE [Concomitant]
     Active Substance: DESVENLAFAXINE SUCCINATE
  25. ESTRADIOL;PROGESTERONE [Concomitant]
  26. ERGOCALCIFEROL [Concomitant]
     Active Substance: ERGOCALCIFEROL
  27. SILVER SULFADIAZINE [Concomitant]
     Active Substance: SILVER SULFADIAZINE
  28. MUPIROCIN [Concomitant]
     Active Substance: MUPIROCIN
  29. CYANOCOBALAMIN [Concomitant]
     Active Substance: CYANOCOBALAMIN
  30. FLUTICASONE [Concomitant]
     Active Substance: FLUTICASONE
  31. ESOMEPRAZOLE [Concomitant]
     Active Substance: ESOMEPRAZOLE
  32. FEXOFENADINE [Concomitant]
     Active Substance: FEXOFENADINE HYDROCHLORIDE
  33. NITRO-BID [Concomitant]
     Active Substance: NITROGLYCERIN
  34. PROCHLORPERAZINE [Concomitant]
     Active Substance: PROCHLORPERAZINE
  35. NURTEC ODT [Concomitant]
     Active Substance: RIMEGEPANT SULFATE
  36. SPIRIVA [Concomitant]
     Active Substance: TIOTROPIUM BROMIDE MONOHYDRATE
  37. ACETAMINOPHEN\HYDROCODONE [Concomitant]
     Active Substance: ACETAMINOPHEN\HYDROCODONE
  38. DUONEB [Concomitant]
     Active Substance: ALBUTEROL SULFATE\IPRATROPIUM BROMIDE
  39. KETOTIFEN [Concomitant]
     Active Substance: KETOTIFEN
  40. ALBUTEROL [Concomitant]
     Active Substance: ALBUTEROL

REACTIONS (29)
  - Impaired gastric emptying [Unknown]
  - Multiple sclerosis [Unknown]
  - Diabetes mellitus [Unknown]
  - Colitis ulcerative [Unknown]
  - Hypothyroidism [Recovering/Resolving]
  - Hyperthyroidism [Recovering/Resolving]
  - Renal impairment [Unknown]
  - Ear infection [Not Recovered/Not Resolved]
  - Sinusitis [Not Recovered/Not Resolved]
  - Balance disorder [Unknown]
  - Migraine [Unknown]
  - Respiratory tract infection [Recovered/Resolved]
  - Hepatic enzyme increased [Unknown]
  - Illness [Unknown]
  - Blood triglycerides increased [Unknown]
  - Glycosylated haemoglobin increased [Unknown]
  - Gastrooesophageal reflux disease [Unknown]
  - Weight increased [Recovering/Resolving]
  - Fluid retention [Unknown]
  - Condition aggravated [Unknown]
  - Pain [Unknown]
  - Swelling [Unknown]
  - Colonoscopy abnormal [Unknown]
  - Food intolerance [Unknown]
  - Malnutrition [Unknown]
  - Infusion related reaction [Not Recovered/Not Resolved]
  - Fatigue [Not Recovered/Not Resolved]
  - Feeling hot [Not Recovered/Not Resolved]
  - Sensory disturbance [Not Recovered/Not Resolved]

NARRATIVE: CASE EVENT DATE: 20170701
